FAERS Safety Report 14592949 (Version 1)
Quarter: 2018Q1

REPORT INFORMATION
  Report Type: Spontaneous
  Country: US (occurrence: US)
  Receive Date: 20180302
  Receipt Date: 20180302
  Transmission Date: 20180509
  Serious: No
  Sender: FDA-Public Use
  Company Number: US-ENDO PHARMACEUTICALS INC-2017-004707

PATIENT
  Sex: Male
  Weight: 102.4 kg

DRUGS (1)
  1. XIAFLEX [Suspect]
     Active Substance: COLLAGENASE CLOSTRIDIUM HISTOLYTICUM
     Indication: DUPUYTREN^S CONTRACTURE
     Dosage: UNK UNKNOWN, UNKNOWN
     Route: 026
     Dates: start: 2008

REACTIONS (4)
  - Wound [Recovered/Resolved]
  - Laceration [Recovered/Resolved]
  - Disease recurrence [Unknown]
  - Dupuytren^s contracture [Unknown]
